FAERS Safety Report 5174403-4 (Version None)
Quarter: 2006Q4

REPORT INFORMATION
  Report Type: 
  Country: None (occurrence: None)
  Receive Date: 20061214
  Receipt Date: 20061201
  Transmission Date: 20070319
  Serious: Yes (Hospitalization, Other)
  Sender: FDA-Public Use
  Company Number: JP-ELI_LILLY_AND_COMPANY-JP200612000450

PATIENT
  Age: 58 Year
  Sex: Male

DRUGS (1)
  1. GEMZAR [Suspect]
     Indication: PANCREATIC CARCINOMA
     Dosage: 1200 MG, UNKNOWN
     Route: 042
     Dates: start: 20050701, end: 20060912

REACTIONS (3)
  - ACUTE MYELOID LEUKAEMIA [None]
  - CHOLANGITIS [None]
  - MALIGNANT NEOPLASM PROGRESSION [None]
